FAERS Safety Report 14587717 (Version 1)
Quarter: 2018Q1

REPORT INFORMATION
  Report Type: Report from Study
  Country: US (occurrence: US)
  Receive Date: 20180301
  Receipt Date: 20180301
  Transmission Date: 20180509
  Serious: Yes (Hospitalization, Other)
  Sender: FDA-Public Use
  Company Number: US-TEVA-2018-US-864756

PATIENT
  Age: 63 Year
  Sex: Female

DRUGS (3)
  1. COPAXONE [Suspect]
     Active Substance: GLATIRAMER ACETATE
     Indication: MULTIPLE SCLEROSIS
     Route: 058
     Dates: start: 20110719
  2. GABAPENTIN. [Interacting]
     Active Substance: GABAPENTIN
     Route: 065
  3. COPAXONE [Interacting]
     Active Substance: GLATIRAMER ACETATE
     Route: 058
     Dates: start: 20140519, end: 20170101

REACTIONS (9)
  - Pulmonary embolism [Unknown]
  - Chest pain [Unknown]
  - Drug interaction [Unknown]
  - Serotonin syndrome [Unknown]
  - Blood potassium increased [Unknown]
  - Peripheral artery thrombosis [Unknown]
  - Toxic encephalopathy [Unknown]
  - Pain in extremity [Unknown]
  - Renal failure [Unknown]

NARRATIVE: CASE EVENT DATE: 201701
